FAERS Safety Report 11518851 (Version 7)
Quarter: 2018Q3

REPORT INFORMATION
  Report Type: Spontaneous
  Country: US (occurrence: US)
  Receive Date: 20150917
  Receipt Date: 20180928
  Transmission Date: 20181010
  Serious: No
  Sender: FDA-Public Use
  Company Number: US-PFIZER INC-2015310782

PATIENT
  Age: 40 Year
  Sex: Female

DRUGS (20)
  1. CLINDAMYCIN HCL [Suspect]
     Active Substance: CLINDAMYCIN HYDROCHLORIDE
     Indication: BRONCHITIS
     Dosage: UNK
     Dates: start: 20150920
  2. PREDNISONE. [Suspect]
     Active Substance: PREDNISONE
     Indication: MUSCLE SPASMS
  3. VALIUM [Concomitant]
     Active Substance: DIAZEPAM
     Dosage: 5 MG, UNK
     Dates: start: 20150219
  4. PREDNISONE. [Suspect]
     Active Substance: PREDNISONE
     Indication: BACK PAIN
  5. OXYCODONE [Concomitant]
     Active Substance: OXYCODONE
     Dosage: 5 MG, EVERY 4 HRS
     Dates: start: 20150219
  6. VALIUM [Concomitant]
     Active Substance: DIAZEPAM
     Dosage: 5 MG, 2X/DAY
  7. PRILOSEC [Concomitant]
     Active Substance: OMEPRAZOLE MAGNESIUM
     Dosage: UNK, 1X/DAY
     Dates: start: 20150219
  8. LINZESS [Concomitant]
     Active Substance: LINACLOTIDE
     Dosage: UNK
     Dates: end: 2017
  9. PAXIL [Concomitant]
     Active Substance: PAROXETINE HYDROCHLORIDE
     Dosage: UNK
     Dates: end: 2017
  10. CLINDAMYCIN HCL [Suspect]
     Active Substance: CLINDAMYCIN HYDROCHLORIDE
     Indication: ORAL INFECTION
  11. CLINDAMYCIN HCL [Suspect]
     Active Substance: CLINDAMYCIN HYDROCHLORIDE
     Indication: ILL-DEFINED DISORDER
     Dosage: 300 MG, 4X/DAY (^Q6H UNTIL GONE^)
     Route: 048
     Dates: start: 20141222
  12. PREDNISONE. [Suspect]
     Active Substance: PREDNISONE
     Indication: NECK PAIN
  13. ZOFRAN [Concomitant]
     Active Substance: ONDANSETRON HYDROCHLORIDE
     Dosage: 4 MG, UNK (1 UNDER TONGUE UP TO 4 TIMES A DAY/ EVERY 4 HOURS)
     Route: 060
     Dates: start: 20150219
  14. PROZAC [Concomitant]
     Active Substance: FLUOXETINE HYDROCHLORIDE
     Dosage: UNK
     Dates: end: 2017
  15. CLINDAMYCIN HCL [Suspect]
     Active Substance: CLINDAMYCIN HYDROCHLORIDE
     Indication: PNEUMONIA
     Dosage: UNK UNK, 2X/DAY (FOR FIVE DAYS)
     Dates: start: 2015
  16. LORTADINE [Concomitant]
     Dosage: UNK, 1X/DAY
     Dates: start: 20150219
  17. PREDNISONE. [Suspect]
     Active Substance: PREDNISONE
     Indication: PNEUMONIA
     Dosage: UNK
     Dates: start: 20150920
  18. BUSPAR [Concomitant]
     Active Substance: BUSPIRONE HYDROCHLORIDE
     Dosage: UNK
     Dates: end: 2017
  19. PREDNISONE. [Suspect]
     Active Substance: PREDNISONE
     Indication: BRONCHITIS
  20. CLINDAMYCIN HCL [Suspect]
     Active Substance: CLINDAMYCIN HYDROCHLORIDE
     Indication: TOOTH INFECTION

REACTIONS (15)
  - Nervousness [Recovered/Resolved]
  - Nausea [Not Recovered/Not Resolved]
  - Dyskinesia [Recovered/Resolved]
  - Pain [Recovered/Resolved]
  - Muscle spasms [Unknown]
  - Vomiting [Not Recovered/Not Resolved]
  - Irritability [Recovered/Resolved]
  - Condition aggravated [Unknown]
  - Abdominal pain upper [Not Recovered/Not Resolved]
  - Malaise [Not Recovered/Not Resolved]
  - Anxiety [Unknown]
  - Diarrhoea [Not Recovered/Not Resolved]
  - Confusional state [Not Recovered/Not Resolved]
  - Cardiac disorder [Unknown]
  - Insomnia [Unknown]

NARRATIVE: CASE EVENT DATE: 2015
